FAERS Safety Report 26209253 (Version 2)
Quarter: 2025Q4

REPORT INFORMATION
  Report Type: Spontaneous
  Country: US (occurrence: US)
  Receive Date: 20251229
  Receipt Date: 20251231
  Transmission Date: 20260117
  Serious: Yes (Life-Threatening, Hospitalization, Other)
  Sender: NOVARTIS
  Company Number: US-002147023-NVSC2025US197502

PATIENT
  Age: 3 Year
  Sex: Male

DRUGS (2)
  1. ARTEMETHER\LUMEFANTRINE [Suspect]
     Active Substance: ARTEMETHER\LUMEFANTRINE
     Indication: Malaria
     Dosage: UNK
     Route: 048
  2. ARTESUNATE [Suspect]
     Active Substance: ARTESUNATE
     Indication: Malaria
     Dosage: UNK
     Route: 042

REACTIONS (4)
  - Haemolytic anaemia [Recovered/Resolved]
  - Pallor [Unknown]
  - Abdominal distension [Unknown]
  - Oedema [Unknown]
